FAERS Safety Report 25448542 (Version 2)
Quarter: 2025Q3

REPORT INFORMATION
  Report Type: Spontaneous
  Country: JP (occurrence: JP)
  Receive Date: 20250618
  Receipt Date: 20250809
  Transmission Date: 20251020
  Serious: Yes (Other)
  Sender: ALEXION PHARMACEUTICALS
  Company Number: JP-ASTRAZENECA-250058185_013020_P_1

PATIENT
  Age: 72 Year
  Sex: Female
  Weight: 42 kg

DRUGS (1)
  1. TAGRISSO [Suspect]
     Active Substance: OSIMERTINIB
     Indication: Non-small cell lung cancer
     Dosage: 80 MILLIGRAM, QD

REACTIONS (9)
  - Sarcoma of skin [Unknown]
  - Salivary hyposecretion [Unknown]
  - Dental caries [Unknown]
  - Hypoaesthesia oral [Unknown]
  - Periodontitis [Unknown]
  - Pruritus [Unknown]
  - Rash [Unknown]
  - Peripheral swelling [Unknown]
  - Gait disturbance [Unknown]
